FAERS Safety Report 8453330-0 (Version None)
Quarter: 2012Q2

REPORT INFORMATION
  Report Type: 
  Country: None (occurrence: None)
  Receive Date: 20120620
  Receipt Date: 20120513
  Transmission Date: 20120825
  Serious: No
  Sender: FDA-Public Use
  Company Number: US-VERTEX PHARMACEUTICALS INC.-AE-2012-007056

PATIENT
  Sex: Female
  Weight: 72.64 kg

DRUGS (7)
  1. PEGASYS [Concomitant]
     Indication: HEPATITIS C
     Route: 058
     Dates: start: 20120213
  2. ALTACE [Concomitant]
     Indication: BLOOD PRESSURE
  3. INCIVEK [Suspect]
     Indication: HEPATITIS C
     Route: 048
     Dates: start: 20120213
  4. RIBAVIRIN [Concomitant]
     Indication: HEPATITIS C
     Route: 048
     Dates: start: 20120213
  5. PLAVIX [Concomitant]
  6. ASPIRIN [Concomitant]
     Route: 048
  7. COREG [Concomitant]
     Indication: BLOOD PRESSURE

REACTIONS (6)
  - HAEMORRHOIDS [None]
  - ASTHENIA [None]
  - STOMATITIS [None]
  - ANAEMIA [None]
  - PRURITUS [None]
  - PAIN [None]
